FAERS Safety Report 5876658-7 (Version None)
Quarter: 2008Q3

REPORT INFORMATION
  Report Type: 
  Country: None (occurrence: None)
  Receive Date: 20080910
  Receipt Date: 20080901
  Transmission Date: 20090109
  Serious: Yes (Other)
  Sender: FDA-Public Use
  Company Number: FR-ABBOTT-08P-056-0474056-00

PATIENT
  Sex: Female

DRUGS (1)
  1. HUMIRA [Suspect]
     Indication: RHEUMATOID ARTHRITIS
     Route: 058
     Dates: start: 20080222, end: 20080401

REACTIONS (9)
  - ARTHRALGIA [None]
  - INJECTION SITE REACTION [None]
  - LYMPHADENOPATHY [None]
  - PURPURA [None]
  - PUSTULAR PSORIASIS [None]
  - PYREXIA [None]
  - RASH [None]
  - RASH MACULAR [None]
  - SNEEZING [None]
